FAERS Safety Report 4752187-9 (Version None)
Quarter: 2005Q3

REPORT INFORMATION
  Report Type: 
  Country: None (occurrence: None)
  Receive Date: 20050804
  Receipt Date: 20050804
  Transmission Date: 20060218
  Serious: Yes (Hospitalization, Other)
  Sender: FDA-Public Use
  Company Number: None

PATIENT
  Sex: Female
  Weight: 50.5 kg

DRUGS (4)
  1. TEMOZOLOMIDE [Suspect]
     Indication: GLIOBLASTOMA MULTIFORME
     Dosage: SEE IMAGE
     Route: 048
     Dates: start: 20050815
  2. TEMOZOLOMIDE [Suspect]
     Dosage: SEE IMAGE
     Route: 048
     Dates: start: 20050811
  3. IRINOTECAN [Suspect]
     Dosage: SEE IMAGE
     Dates: start: 20050811
  4. RADIATION [Suspect]
     Dosage: SEE IMAGE
     Dates: start: 20050811

REACTIONS (2)
  - NAUSEA [None]
  - VOMITING [None]
